FAERS Safety Report 10439043 (Version 1)
Quarter: 2014Q3

REPORT INFORMATION
  Report Type: Spontaneous
  Country: FR (occurrence: None)
  Receive Date: 20140904
  Receipt Date: 20140904
  Transmission Date: 20150326
  Serious: Yes (Disabling)
  Sender: FDA-Public Use
  Company Number: FR-20140291

PATIENT
  Age: 18 Year
  Sex: Male

DRUGS (4)
  1. TEMODAL [Suspect]
     Active Substance: TEMOZOLOMIDE
     Indication: MEDULLOBLASTOMA RECURRENT
     Dosage: 158 MG (158 MG, 1 IN 1 D) ORAL X 4 DAYS.
     Route: 048
     Dates: start: 20140721, end: 20140725
  2. DOTAREM [Suspect]
     Active Substance: GADOTERATE MEGLUMINE
     Indication: NUCLEAR MAGNETIC RESONANCE IMAGING
     Dosage: 1 DOSAGE FORMS (1 DOSAGE FORMS, 1 IN 1 D)  INTRAVENOUS (NOT OTHERWISE SPECIFIED)
     Route: 042
     Dates: start: 20140721, end: 20140721
  3. BACTRIM (SULFAMETHOXAZOLE, TRIMETHOPRIM) [Concomitant]
  4. IRINOTECAN [Suspect]
     Active Substance: IRINOTECAN
     Indication: MEDULLOBLASTOMA RECURRENT
     Dosage: 158 MG (158 MG, 1 IN 1 D) ORAL
     Route: 041
     Dates: start: 20140721

REACTIONS (1)
  - Aphasia [None]

NARRATIVE: CASE EVENT DATE: 20140721
